FAERS Safety Report 10768496 (Version 4)
Quarter: 2018Q1

REPORT INFORMATION
  Report Type: Spontaneous
  Country: MX (occurrence: MX)
  Receive Date: 20150206
  Receipt Date: 20180319
  Transmission Date: 20180508
  Serious: Yes (Disabling, Other)
  Sender: FDA-Public Use
  Company Number: MX-ROCHE-1532141

PATIENT
  Age: 58 Year
  Sex: Male
  Weight: 68 kg

DRUGS (1)
  1. AVASTIN [Suspect]
     Active Substance: BEVACIZUMAB
     Indication: DIABETIC RETINOPATHY
     Dosage: CYCLICAL. THE COMPLAINT SAMPLE OF BEVACIZUMAB VIALS 100 MG/4ML (BATCH H0131B023)  WAS A COUNTERFEILT
     Route: 050
     Dates: start: 2013, end: 201511

REACTIONS (4)
  - Retinitis [Recovered/Resolved]
  - Off label use [Unknown]
  - Suspected counterfeit product [Unknown]
  - Visual impairment [Not Recovered/Not Resolved]

NARRATIVE: CASE EVENT DATE: 201411
